FAERS Safety Report 8529583-7 (Version None)
Quarter: 2012Q3

REPORT INFORMATION
  Report Type: 
  Country: None (occurrence: None)
  Receive Date: 20120723
  Receipt Date: 20120717
  Transmission Date: 20120928
  Serious: Yes (Other)
  Sender: FDA-Public Use
  Company Number: US-BAYER-2012-072674

PATIENT
  Age: 69 Year
  Sex: Female

DRUGS (1)
  1. BETASERON [Suspect]
     Indication: MULTIPLE SCLEROSIS
     Dosage: 0.0625 MG
     Route: 058
     Dates: start: 20120711

REACTIONS (8)
  - MYALGIA [None]
  - DISORIENTATION [None]
  - MENTAL IMPAIRMENT [None]
  - ASTHENIA [None]
  - HEADACHE [None]
  - APHASIA [None]
  - NAUSEA [None]
  - ARTHRALGIA [None]
